FAERS Safety Report 13800643 (Version 3)
Quarter: 2019Q1

REPORT INFORMATION
  Report Type: Spontaneous
  Country: JP (occurrence: JP)
  Receive Date: 20170727
  Receipt Date: 20190315
  Transmission Date: 20190417
  Serious: Yes (Life-Threatening, Hospitalization, Other)
  Sender: FDA-Public Use
  Company Number: JP-ACTELION-A-CH2017-156781

PATIENT
  Age: 27 Year
  Sex: Male

DRUGS (11)
  1. LASIX [Concomitant]
     Active Substance: FUROSEMIDE
  2. HYDROCHLOROTHIAZIDE. [Concomitant]
     Active Substance: HYDROCHLOROTHIAZIDE
  3. RENIVACE [Suspect]
     Active Substance: ENALAPRIL
     Dosage: 2 DF, QD
     Route: 048
     Dates: end: 20171214
  4. OPSUMIT [Suspect]
     Active Substance: MACITENTAN
     Indication: PULMONARY ARTERIAL HYPERTENSION
     Dosage: 10 MG, QD
     Route: 048
     Dates: start: 20151014, end: 20171214
  5. RENIVACE [Suspect]
     Active Substance: ENALAPRIL
     Indication: PULMONARY ARTERIAL HYPERTENSION
     Dosage: 2.5 MG, BID
     Route: 048
     Dates: start: 20110728
  6. ALDACTONE A [Suspect]
     Active Substance: SPIRONOLACTONE
     Indication: PULMONARY ARTERIAL HYPERTENSION
     Dosage: 25 MG, BID
     Route: 048
     Dates: start: 20110728, end: 20171211
  7. LANIRAPID [Concomitant]
     Active Substance: METILDIGOXIN
  8. BUFFERIN A [Concomitant]
  9. OXYGEN. [Concomitant]
     Active Substance: OXYGEN
  10. SAMSCA [Concomitant]
     Active Substance: TOLVAPTAN
  11. SALOBEL [Concomitant]
     Active Substance: ALLOPURINOL

REACTIONS (4)
  - Atrial tachycardia [Recovered/Resolved with Sequelae]
  - Extremity necrosis [Unknown]
  - Transfusion [Unknown]
  - Gastric haemorrhage [Recovered/Resolved]

NARRATIVE: CASE EVENT DATE: 20170306
